FAERS Safety Report 12398013 (Version 2)
Quarter: 2016Q2

REPORT INFORMATION
  Report Type: Report from Study
  Country: US (occurrence: US)
  Receive Date: 20160524
  Receipt Date: 20160614
  Transmission Date: 20160815
  Serious: Yes (Other)
  Sender: FDA-Public Use
  Company Number: US-ABBVIE-16K-163-1631453-00

PATIENT
  Age: 55 Year
  Sex: Female

DRUGS (2)
  1. HUMIRA [Suspect]
     Active Substance: ADALIMUMAB
     Indication: RHEUMATOID ARTHRITIS
     Route: 058
     Dates: start: 201411
  2. HUMIRA [Suspect]
     Active Substance: ADALIMUMAB
     Route: 058
     Dates: start: 201511

REACTIONS (9)
  - Flank pain [Unknown]
  - Nephrolithiasis [Recovered/Resolved]
  - Hypertension [Recovered/Resolved]
  - Neoplasm [Not Recovered/Not Resolved]
  - Aphasia [Unknown]
  - Lymphoma [Not Recovered/Not Resolved]
  - Memory impairment [Not Recovered/Not Resolved]
  - Flank pain [Recovered/Resolved]
  - Inflammation [Not Recovered/Not Resolved]

NARRATIVE: CASE EVENT DATE: 201503
